FAERS Safety Report 7412806-5 (Version None)
Quarter: 2011Q2

REPORT INFORMATION
  Report Type: 
  Country: None (occurrence: None)
  Receive Date: 20110413
  Receipt Date: 20110207
  Transmission Date: 20111010
  Serious: Yes (Hospitalization)
  Sender: FDA-Public Use
  Company Number: B0699340A

PATIENT
  Sex: Male
  Weight: 72 kg

DRUGS (8)
  1. PREDNISONE [Suspect]
     Indication: MULTIPLE MYELOMA
     Dates: start: 20101101, end: 20101214
  2. BETALOC [Concomitant]
     Dates: start: 20101005
  3. THALIDOMIDE [Suspect]
     Indication: MULTIPLE MYELOMA
     Dosage: 100MG PER DAY
     Route: 048
     Dates: start: 20101101
  4. BENDROFLUAZIDE [Concomitant]
     Dates: start: 20070101
  5. BENDROFLUAZIDE [Concomitant]
     Indication: DIURETIC THERAPY
     Dosage: 2.5MG PER DAY
     Route: 048
  6. WARFARIN [Concomitant]
     Indication: ANTICOAGULANT THERAPY
     Route: 048
     Dates: start: 20070101
  7. MELPHALAN HYDROCHLORIDE [Suspect]
     Indication: MULTIPLE MYELOMA
     Dates: start: 20101101, end: 20101214
  8. BETALOC [Concomitant]
     Indication: TACHYCARDIA
     Dosage: 95MG TWICE PER DAY
     Route: 048

REACTIONS (3)
  - DIARRHOEA [None]
  - NEUTROPENIA [None]
  - PYREXIA [None]
